FAERS Safety Report 10200992 (Version 1)
Quarter: 2014Q2

REPORT INFORMATION
  Report Type: Report from Study
  Country: US (occurrence: US)
  Receive Date: 20140528
  Receipt Date: 20140528
  Transmission Date: 20141212
  Serious: Yes (Death)
  Sender: FDA-Public Use
  Company Number: PHEH2014US010717

PATIENT
  Age: 81 Year
  Sex: Male

DRUGS (3)
  1. TOBI PODHALER [Suspect]
     Indication: BRONCHIECTASIS
     Dosage: 112 MG, BID (28 DAYS ON AND 28 DAYS OFF)
     Route: 055
     Dates: start: 20140227
  2. TOBI PODHALER [Suspect]
     Indication: PNEUMONIA
  3. TOBI PODHALER [Suspect]
     Indication: DYSPNOEA

REACTIONS (1)
  - Death [Fatal]
